FAERS Safety Report 9319946 (Version 2)
Quarter: 2013Q2

REPORT INFORMATION
  Report Type: Spontaneous
  Country: DE (occurrence: DE)
  Receive Date: 20130530
  Receipt Date: 20130606
  Transmission Date: 20140414
  Serious: Yes (Other)
  Sender: FDA-Public Use
  Company Number: DE-PFIZER INC-2013165305

PATIENT
  Sex: Male

DRUGS (1)
  1. SUTENT [Suspect]
     Dosage: UNK
     Dates: start: 20130416

REACTIONS (6)
  - Pneumonia [Unknown]
  - Dysphagia [Unknown]
  - Increased upper airway secretion [Unknown]
  - Cough [Unknown]
  - Vomiting [Unknown]
  - Bronchitis [Unknown]
